FAERS Safety Report 14514119 (Version 1)
Quarter: 2018Q1

REPORT INFORMATION
  Report Type: Report from Study
  Country: US (occurrence: KR)
  Receive Date: 20180209
  Receipt Date: 20180209
  Transmission Date: 20180509
  Serious: Yes (Other)
  Sender: FDA-Public Use
  Company Number: US-SUNOVION-2018SUN000511

PATIENT
  Sex: Male

DRUGS (2)
  1. INDACATEROL AND GLYCOPYRROLATE [Suspect]
     Active Substance: GLYCOPYRROLATE\INDACATEROL MALEATE
     Indication: CHRONIC OBSTRUCTIVE PULMONARY DISEASE
     Dosage: 1 DF (50 UG GLYCOPYRRONIUM BROMIDE, 110 UG INDACATEROL), UNK
     Route: 055
     Dates: start: 20171124
  2. THEOLAN [Concomitant]
     Dosage: 200 MG, UNK

REACTIONS (3)
  - Dizziness [Recovering/Resolving]
  - Orbital oedema [Recovering/Resolving]
  - Pleural adhesion [Recovering/Resolving]

NARRATIVE: CASE EVENT DATE: 20171206
